FAERS Safety Report 5072304-3 (Version None)
Quarter: 2006Q3

REPORT INFORMATION
  Report Type: 
  Country: None (occurrence: None)
  Receive Date: 20060714
  Receipt Date: 20060421
  Transmission Date: 20061208
  Serious: Yes (Hospitalization)
  Sender: FDA-Public Use
  Company Number: 06P-163-0331309-00

PATIENT
  Sex: Female

DRUGS (1)
  1. ULTANE [Suspect]
     Indication: ANAESTHESIA
     Dosage: INHALATION
     Dates: start: 20060301, end: 20060301

REACTIONS (3)
  - HEPATITIS [None]
  - JAUNDICE [None]
  - LIVER FUNCTION TEST ABNORMAL [None]
